FAERS Safety Report 6314193-2 (Version None)
Quarter: 2009Q3

REPORT INFORMATION
  Report Type: 
  Country: None (occurrence: None)
  Receive Date: 20090818
  Receipt Date: 20090814
  Transmission Date: 20100115
  Serious: Yes (Death, Other)
  Sender: FDA-Public Use
  Company Number: PHEH2009US08323

PATIENT
  Sex: Male
  Weight: 96.7 kg

DRUGS (8)
  1. EXJADE [Suspect]
     Indication: LYMPHOPROLIFERATIVE DISORDER
     Dosage: 1375 MG, QD
     Route: 048
     Dates: start: 20081117
  2. EXJADE [Suspect]
     Indication: IRON OVERLOAD
  3. LISINOPRIL [Concomitant]
     Dosage: 2.5 MG, QD
     Route: 048
  4. METFORMIN HCL [Concomitant]
     Dosage: 500 MG, QD
     Route: 048
  5. GLYBURIDE [Concomitant]
     Dosage: 5 MG, QD
     Route: 048
  6. INULIN [Concomitant]
     Dosage: TWO TABS, QD
     Route: 048
  7. FLUCONAZOLE [Concomitant]
     Dosage: 200 MG, QD
     Route: 048
  8. ACYCLOVIR [Concomitant]
     Dosage: 800 MG, QD
     Route: 048

REACTIONS (2)
  - ACUTE MYELOID LEUKAEMIA [None]
  - BLOOD GLUCOSE INCREASED [None]
